FAERS Safety Report 9026027 (Version 1)
Quarter: 2013Q1

REPORT INFORMATION
  Report Type: Spontaneous
  Country: AU (occurrence: AU)
  Receive Date: 20130122
  Receipt Date: 20130122
  Transmission Date: 20140127
  Serious: Yes (Hospitalization)
  Sender: FDA-Public Use
  Company Number: AU-ROCHE-1180939

PATIENT
  Age: 88 Year
  Sex: Female
  Weight: 45 kg

DRUGS (7)
  1. NAPROXEN [Suspect]
     Indication: PAIN
     Route: 048
     Dates: end: 20110118
  2. WARFARIN SODIUM [Suspect]
     Indication: ARRHYTHMIA
     Route: 048
  3. FELODIPINE [Concomitant]
     Indication: ESSENTIAL HYPERTENSION
  4. GLYCERYL TRINITRATE [Concomitant]
  5. PANTOPRAZOLE [Concomitant]
     Indication: OESOPHAGEAL DISORDER
  6. PARACETAMOL/CODEINE PHOSPHATE [Concomitant]
     Indication: PAIN
  7. SOTALOL HYDROCHLORIDE [Concomitant]

REACTIONS (2)
  - Haemoglobin decreased [Not Recovered/Not Resolved]
  - Rectal haemorrhage [Not Recovered/Not Resolved]
